FAERS Safety Report 7479041-6 (Version None)
Quarter: 2011Q2

REPORT INFORMATION
  Report Type: 
  Country: None (occurrence: None)
  Receive Date: 20110513
  Receipt Date: 20110504
  Transmission Date: 20111010
  Serious: Yes (Disabling)
  Sender: FDA-Public Use
  Company Number: PHHY2011CH37829

PATIENT
  Sex: Male
  Weight: 80 kg

DRUGS (6)
  1. DICLOFENAC SODIUM [Suspect]
     Route: 030
  2. CORDARONE [Concomitant]
     Route: 048
  3. LISINOPRIL [Concomitant]
     Route: 048
  4. PRAVASTATIN [Concomitant]
     Route: 048
  5. ASPIRIN [Concomitant]
     Dosage: 100 MG, QD
     Route: 048
  6. INSULIN [Concomitant]
     Indication: TYPE 1 DIABETES MELLITUS
     Route: 058

REACTIONS (4)
  - RADIAL NERVE PALSY [None]
  - PERIPHERAL NERVE INJURY [None]
  - MONOPLEGIA [None]
  - PAIN IN EXTREMITY [None]
